FAERS Safety Report 18726307 (Version 1)
Quarter: 2021Q1

REPORT INFORMATION
  Report Type: Spontaneous
  Country: ES (occurrence: ES)
  Receive Date: 20210111
  Receipt Date: 20210111
  Transmission Date: 20210419
  Serious: Yes (Other)
  Sender: FDA-Public Use
  Company Number: ES-PFIZER INC-2021003444

PATIENT
  Age: 43 Year
  Sex: Female

DRUGS (1)
  1. KETAMINE HCL [Suspect]
     Active Substance: KETAMINE HYDROCHLORIDE
     Indication: DEPRESSION
     Dosage: 0.5 MG/KG, 2X/WEEK (IN PHYSIOLOGICAL SALINE DURING 45 MIN TWICE A WEEK FOR 3 WEEKS)
     Route: 042

REACTIONS (13)
  - Dreamy state [Unknown]
  - Thirst [Unknown]
  - Dizziness [Unknown]
  - Feeling drunk [Unknown]
  - Drug effective for unapproved indication [Unknown]
  - Apnoea [Recovered/Resolved]
  - Headache [Unknown]
  - Vision blurred [Unknown]
  - Off label use [Unknown]
  - Nausea [Unknown]
  - Motor dysfunction [Unknown]
  - Paraesthesia [Unknown]
  - Hyperaesthesia [Unknown]
